FAERS Safety Report 7483143-8 (Version None)
Quarter: 2011Q2

REPORT INFORMATION
  Report Type: 
  Country: None (occurrence: None)
  Receive Date: 20110516
  Receipt Date: 20110510
  Transmission Date: 20111010
  Serious: Yes (Other)
  Sender: FDA-Public Use
  Company Number: US-GILEAD-2011-0039378

PATIENT
  Age: 29 Year
  Sex: Female

DRUGS (3)
  1. ATAZANAVIR [Concomitant]
     Indication: HIV INFECTION
     Dates: start: 20060126
  2. TRUVADA [Suspect]
     Indication: HIV INFECTION
     Dates: start: 20110126
  3. RITONAVIR [Concomitant]
     Indication: HIV INFECTION
     Dates: start: 20060126

REACTIONS (1)
  - ABORTION SPONTANEOUS [None]
